FAERS Safety Report 22605783 (Version 2)
Quarter: 2023Q2

REPORT INFORMATION
  Report Type: Spontaneous
  Country: US (occurrence: US)
  Receive Date: 20230615
  Receipt Date: 20230622
  Transmission Date: 20230722
  Serious: No
  Sender: FDA-Public Use
  Company Number: US-MYLANLABS-2023M1059467

PATIENT
  Sex: Female
  Weight: 127.01 kg

DRUGS (6)
  1. AMLODIPINE [Suspect]
     Active Substance: AMLODIPINE BESYLATE
     Indication: Blood pressure abnormal
     Dosage: UNK, QD (ONCE A DAY)
     Route: 065
     Dates: end: 20230615
  2. FERROUS SULFATE [Concomitant]
     Active Substance: FERROUS SULFATE
     Dosage: 325 MILLIGRAM, (EVERY OTHER DAY)
     Route: 065
  3. RECORLEV [Concomitant]
     Active Substance: LEVOKETOCONAZOLE
     Dosage: 150 MILLIGRAM, QID (4X A DAY)
     Route: 065
  4. MONTELUKAST [Concomitant]
     Active Substance: MONTELUKAST SODIUM
     Dosage: UNK, QD (ONCE A DAY)
     Route: 065
  5. PANTOPRAZOLE [Concomitant]
     Active Substance: PANTOPRAZOLE
     Dosage: UNK, BID (2X A DAY)
     Route: 065
  6. ESTRADIOL [Concomitant]
     Active Substance: ESTRADIOL
     Dosage: UNK, QD (ONCE A DAY)
     Route: 065

REACTIONS (3)
  - Joint swelling [Recovered/Resolved]
  - Drug hypersensitivity [Unknown]
  - Pruritus [Unknown]
